FAERS Safety Report 10398860 (Version 2)
Quarter: 2014Q3

REPORT INFORMATION
  Report Type: Spontaneous
  Country: US (occurrence: None)
  Receive Date: 20140819
  Receipt Date: 20140825
  Transmission Date: 20150326
  Serious: Yes (Hospitalization)
  Sender: FDA-Public Use
  Company Number: 2014-US-010224

PATIENT
  Age: 71 Year
  Sex: Female

DRUGS (2)
  1. FAZACLO [Suspect]
     Active Substance: CLOZAPINE
     Indication: BIPOLAR DISORDER
     Route: 048
     Dates: start: 20140425, end: 20140814
  2. FAZACLO [Suspect]
     Active Substance: CLOZAPINE
     Route: 048
     Dates: start: 20140425, end: 20140814

REACTIONS (4)
  - Investigation [None]
  - Refusal of treatment by patient [None]
  - Agitation [None]
  - Off label use [None]

NARRATIVE: CASE EVENT DATE: 20140425
